FAERS Safety Report 20258267 (Version 1)
Quarter: 2021Q4

REPORT INFORMATION
  Report Type: Spontaneous
  Country: US (occurrence: None)
  Receive Date: 20211229
  Receipt Date: 20211229
  Transmission Date: 20220303
  Serious: Yes (Hospitalization)
  Sender: FDA-Public Use
  Company Number: None

PATIENT
  Sex: Male

DRUGS (1)
  1. ABIRATERONE ACETATE [Suspect]
     Active Substance: ABIRATERONE ACETATE
     Indication: Carcinoid tumour
     Dosage: FREQUENCY : DAILY;?TAKE 4 TABLETS (1,000 MG) BY MOUTH ONCE DAILY ON AN EMPTY STOMACH. DO NOT EAT 2 H
     Route: 048
     Dates: start: 20210121

REACTIONS (5)
  - Fatigue [None]
  - Flushing [None]
  - Hot flush [None]
  - Therapy interrupted [None]
  - Constipation [None]
